FAERS Safety Report 6145527-X (Version None)
Quarter: 2009Q2

REPORT INFORMATION
  Report Type: 
  Country: None (occurrence: None)
  Receive Date: 20090402
  Receipt Date: 20090318
  Transmission Date: 20091009
  Serious: Yes (Hospitalization)
  Sender: FDA-Public Use
  Company Number: 200916814GPV

PATIENT
  Age: 57 Year
  Sex: Male

DRUGS (6)
  1. FLUDARABINE PHOSPHATE [Suspect]
     Indication: CHRONIC LYMPHOCYTIC LEUKAEMIA
     Dosage: 40 MG/M2, ORAL
     Route: 048
     Dates: start: 20080226, end: 20080717
  2. CAMPATH [Suspect]
     Indication: CHRONIC LYMPHOCYTIC LEUKAEMIA
     Dosage: SUBCUTANEOUS
     Route: 058
     Dates: start: 20080226, end: 20080717
  3. CYCLOPHOSPHAMIDE [Suspect]
     Indication: CHRONIC LYMPHOCYTIC LEUKAEMIA
     Dosage: 250 MG/M2, ORAL
     Route: 048
     Dates: start: 20080226, end: 20080717
  4. BACTRIM [Concomitant]
  5. VALACYCLOVIR HCL [Concomitant]
  6. TIFLUCAN (FLUCONAZOLE) [Concomitant]

REACTIONS (10)
  - CD4 LYMPHOCYTES DECREASED [None]
  - CHOLESTASIS [None]
  - DIARRHOEA [None]
  - ENTEROCOCCAL INFECTION [None]
  - GASTROINTESTINAL HYPERMOTILITY [None]
  - HYPERHIDROSIS [None]
  - IMMUNOSUPPRESSION [None]
  - INFLAMMATION [None]
  - LYMPHOPENIA [None]
  - PNEUMOCYSTIS JIROVECI PNEUMONIA [None]
